FAERS Safety Report 7864618-6 (Version None)
Quarter: 2011Q4

REPORT INFORMATION
  Report Type: 
  Country: None (occurrence: None)
  Receive Date: 20111025
  Receipt Date: 20111017
  Transmission Date: 20120403
  Serious: Yes (Death, Hospitalization)
  Sender: FDA-Public Use
  Company Number: IT-ACCORD-011041

PATIENT

DRUGS (1)
  1. MITOMYCIN [Suspect]
     Indication: PRODUCT USED FOR UNKNOWN INDICATION
     Dosage: INTRA-ARTERIAL
     Route: 013

REACTIONS (2)
  - HEPATIC FAILURE [None]
  - OFF LABEL USE [None]
